FAERS Safety Report 8513087-1 (Version None)
Quarter: 2012Q3

REPORT INFORMATION
  Report Type: 
  Country: None (occurrence: None)
  Receive Date: 20120705
  Receipt Date: 20120619
  Transmission Date: 20120928
  Serious: Yes (Other)
  Sender: FDA-Public Use
  Company Number: DSM-2012-00724

PATIENT
  Age: 80 Year
  Sex: Female

DRUGS (3)
  1. OLMESARTAN MEDOXOMIL [Suspect]
     Indication: HYPERTENSION
     Dosage: 10 MG, ORAL
     Route: 048
     Dates: start: 20111001, end: 20120412
  2. ASPIRIN [Concomitant]
  3. CONCOR (BISOPROLOL FUMURATE) (BISOPROLOL FUMARATE) [Concomitant]

REACTIONS (1)
  - DRUG HYPERSENSITIVITY [None]
